FAERS Safety Report 11531908 (Version 1)
Quarter: 2015Q3

REPORT INFORMATION
  Report Type: Spontaneous
  Country: US (occurrence: US)
  Receive Date: 20150921
  Receipt Date: 20150921
  Transmission Date: 20151125
  Serious: No
  Sender: FDA-Public Use
  Company Number: US-TAKEDA-2015TUS012673

PATIENT
  Age: 35 Year
  Sex: Male
  Weight: 102.4 kg

DRUGS (3)
  1. ENTYVIO [Suspect]
     Active Substance: VEDOLIZUMAB
     Indication: CROHN^S DISEASE
     Dosage: 300 MG, UNK
     Route: 042
     Dates: start: 201501
  2. 6-MP [Concomitant]
     Active Substance: MERCAPTOPURINE
     Dosage: UNK
  3. SULFA                              /00076401/ [Concomitant]
     Active Substance: SULFADIAZINE
     Dosage: UNK

REACTIONS (2)
  - Wound infection [Not Recovered/Not Resolved]
  - Laceration [Not Recovered/Not Resolved]

NARRATIVE: CASE EVENT DATE: 201509
